FAERS Safety Report 7547442-3 (Version None)
Quarter: 2011Q2

REPORT INFORMATION
  Report Type: 
  Country: None (occurrence: None)
  Receive Date: 20110614
  Receipt Date: 20110608
  Transmission Date: 20111010
  Serious: Yes (Life-Threatening)
  Sender: FDA-Public Use
  Company Number: TW-ROXANE LABORATORIES, INC.-2011-RO-00788RO

PATIENT
  Age: 9 Year
  Sex: Male
  Weight: 38 kg

DRUGS (4)
  1. XYLOCAINE [Suspect]
  2. KETAMINE HCL [Suspect]
     Indication: PREMEDICATION
     Route: 042
  3. XYLOCAINE [Suspect]
     Indication: HYPOAESTHESIA ORAL
  4. MIDAZOLAM HCL [Suspect]
     Indication: PREMEDICATION
     Route: 042

REACTIONS (2)
  - CIRCULATORY COLLAPSE [None]
  - ANAPHYLACTIC REACTION [None]
